FAERS Safety Report 5255704-8 (Version None)
Quarter: 2007Q1

REPORT INFORMATION
  Report Type: 
  Country: None (occurrence: None)
  Receive Date: 20070305
  Receipt Date: 20070221
  Transmission Date: 20070707
  Serious: Yes (Disabling, Other)
  Sender: FDA-Public Use
  Company Number: FR-PFIZER INC-2007014465

PATIENT
  Age: 57 Year
  Sex: Male

DRUGS (2)
  1. CADUET [Suspect]
     Indication: HYPERTENSION
  2. AMLODIPINE [Concomitant]

REACTIONS (6)
  - ASTHENIA [None]
  - ERECTILE DYSFUNCTION [None]
  - GINGIVAL HYPERTROPHY [None]
  - MUSCLE STRAIN [None]
  - OEDEMA PERIPHERAL [None]
  - VERTIGO [None]
